FAERS Safety Report 20693819 (Version 2)
Quarter: 2022Q2

REPORT INFORMATION
  Report Type: Other
  Country: AR (occurrence: None)
  Receive Date: 20220411
  Receipt Date: 20220623
  Transmission Date: 20220721
  Serious: Yes (Other)
  Sender: FDA-Public Use
  Company Number: AR-ROCHE-3069169

PATIENT
  Sex: Male

DRUGS (2)
  1. ACTEMRA [Suspect]
     Active Substance: TOCILIZUMAB
     Indication: Rheumatoid arthritis
     Dosage: DOSE AND FREQUENCY WERE NOT REPORTED
     Route: 058
     Dates: start: 20210331, end: 20220328
  2. ACTEMRA [Suspect]
     Active Substance: TOCILIZUMAB
     Dosage: DOSE AND FREQUENCY WERE NOT REPORTED
     Route: 058
     Dates: start: 20220615

REACTIONS (1)
  - Peritonitis [Recovered/Resolved]
